FAERS Safety Report 6993651-1 (Version None)
Quarter: 2010Q3

REPORT INFORMATION
  Report Type: 
  Country: None (occurrence: None)
  Receive Date: 20100917
  Receipt Date: 20100412
  Transmission Date: 20110219
  Serious: Yes (Other)
  Sender: FDA-Public Use
  Company Number: US-ASTRAZENECA-2009UW14515

PATIENT
  Sex: Male

DRUGS (2)
  1. SEROQUEL [Suspect]
     Route: 048
     Dates: start: 20010101, end: 20040601
  2. ZYPREXA [Concomitant]
     Dates: start: 20010101, end: 20070901

REACTIONS (2)
  - COMA [None]
  - TYPE 2 DIABETES MELLITUS [None]
